FAERS Safety Report 12183157 (Version 4)
Quarter: 2017Q2

REPORT INFORMATION
  Report Type: Report from Study
  Country: IN (occurrence: IN)
  Receive Date: 20160316
  Receipt Date: 20170517
  Transmission Date: 20170830
  Serious: Yes (Death, Hospitalization, Other)
  Sender: FDA-Public Use
  Company Number: IN-ROCHE-1726542

PATIENT
  Age: 56 Year
  Sex: Female

DRUGS (4)
  1. LIPOSOMAL DOXORUBICIN [Concomitant]
     Active Substance: DOXORUBICIN HYDROCHLORIDE
     Route: 065
     Dates: start: 20140402
  2. ABRAXANE [Concomitant]
     Active Substance: PACLITAXEL
     Route: 065
  3. LIPOSOMAL DOXORUBICIN [Concomitant]
     Active Substance: DOXORUBICIN HYDROCHLORIDE
     Route: 065
  4. AVASTIN [Suspect]
     Active Substance: BEVACIZUMAB
     Indication: OVARIAN CANCER
     Route: 042
     Dates: start: 201502

REACTIONS (10)
  - Constipation [Unknown]
  - Intestinal obstruction [Unknown]
  - Diarrhoea [Recovering/Resolving]
  - Flatulence [Recovering/Resolving]
  - Urinary tract infection [Recovering/Resolving]
  - Death [Fatal]
  - Abdominal pain [Unknown]
  - Carbohydrate antigen 125 increased [Unknown]
  - Pyrexia [Recovering/Resolving]
  - Vomiting [Unknown]

NARRATIVE: CASE EVENT DATE: 201510
